FAERS Safety Report 4977714-8 (Version None)
Quarter: 2006Q2

REPORT INFORMATION
  Report Type: 
  Country: None (occurrence: None)
  Receive Date: 20060420
  Receipt Date: 20060330
  Transmission Date: 20061013
  Serious: Yes (Other)
  Sender: FDA-Public Use
  Company Number: PHBS2006JP04968

PATIENT
  Age: 67 Year
  Sex: Male

DRUGS (6)
  1. TEGRETOL [Suspect]
     Indication: SCHIZOPHRENIA
     Dosage: 300 MG/DAY
     Route: 048
  2. HYDANTOL F [Concomitant]
     Dosage: 3 DF/DAY
     Route: 048
  3. DEPAS [Concomitant]
     Dosage: 3 MG/DAY
     Route: 048
  4. HALCION [Concomitant]
     Dosage: 0.25 MG/DAY
     Route: 048
  5. ROHYPNOL [Concomitant]
     Dosage: 2 MG/DAY
     Route: 048
  6. OMEPRAL [Concomitant]
     Dosage: 20 MG/DAY
     Route: 048

REACTIONS (3)
  - ENZYME INDUCTION [None]
  - OESOPHAGEAL STENOSIS [None]
  - REFLUX OESOPHAGITIS [None]
